FAERS Safety Report 8435707-2 (Version None)
Quarter: 2012Q2

REPORT INFORMATION
  Report Type: 
  Country: None (occurrence: None)
  Receive Date: 20120614
  Receipt Date: 20120605
  Transmission Date: 20120825
  Serious: Yes (Other)
  Sender: FDA-Public Use
  Company Number: CA-JNJFOC-20120603011

PATIENT
  Sex: Female
  Weight: 83 kg

DRUGS (4)
  1. FLAGYL [Concomitant]
     Route: 048
  2. REMICADE [Suspect]
     Indication: CROHN'S DISEASE
     Route: 042
     Dates: start: 20080101
  3. CIPROFLOXACIN [Concomitant]
     Route: 048
  4. METHOTREXATE [Concomitant]
     Route: 065

REACTIONS (1)
  - NEPHROLITHIASIS [None]
